FAERS Safety Report 15108409 (Version 2)
Quarter: 2018Q3

REPORT INFORMATION
  Report Type: Report from Study
  Country: IT (occurrence: IT)
  Receive Date: 20180705
  Receipt Date: 20180801
  Transmission Date: 20181010
  Serious: Yes (Hospitalization)
  Sender: FDA-Public Use
  Company Number: IT-TEVA-2018-IT-918743

PATIENT
  Age: 39 Year
  Sex: Female

DRUGS (2)
  1. CLIMARA [Suspect]
     Active Substance: ESTRADIOL
     Indication: INFERTILITY
     Route: 062
  2. PRONTOGEST [Suspect]
     Active Substance: PROGESTERONE
     Indication: INFERTILITY
     Route: 065

REACTIONS (2)
  - Venous thrombosis limb [Recovering/Resolving]
  - Oedema peripheral [Recovering/Resolving]

NARRATIVE: CASE EVENT DATE: 20160404
